FAERS Safety Report 14848871 (Version 2)
Quarter: 2018Q2

REPORT INFORMATION
  Report Type: Report from Study
  Country: US (occurrence: US)
  Receive Date: 20180504
  Receipt Date: 20180525
  Transmission Date: 20180711
  Serious: Yes (Disabling, Other)
  Sender: FDA-Public Use
  Company Number: US-REGENERON PHARMACEUTICALS, INC.-2018-22121

PATIENT

DRUGS (2)
  1. EYLEA [Suspect]
     Active Substance: AFLIBERCEPT
     Dosage: 2 MG, TOTAL, LAST PRIOR EVENT, OD
     Route: 031
     Dates: start: 20180327, end: 20180327
  2. EYLEA [Suspect]
     Active Substance: AFLIBERCEPT
     Indication: DIABETIC RETINAL OEDEMA
     Dosage: AT ANOTHER PRACTICE, OD
     Route: 031
     Dates: start: 20160427

REACTIONS (4)
  - Blindness unilateral [Not Recovered/Not Resolved]
  - Glaucoma [Not Recovered/Not Resolved]
  - Diabetic retinopathy [Unknown]
  - Fall [Unknown]

NARRATIVE: CASE EVENT DATE: 20180327
